FAERS Safety Report 14114802 (Version 1)
Quarter: 2017Q4

REPORT INFORMATION
  Report Type: Spontaneous
  Country: US (occurrence: US)
  Receive Date: 20171023
  Receipt Date: 20171023
  Transmission Date: 20180321
  Serious: No
  Sender: FDA-Public Use
  Company Number: US-ALLERGAN-1719700US

PATIENT
  Sex: Female

DRUGS (1)
  1. LINZESS [Suspect]
     Active Substance: LINACLOTIDE
     Indication: CONSTIPATION
     Dosage: 290 ?G, EVERY 8 HRS, PRN
     Dates: start: 2016, end: 20170507

REACTIONS (5)
  - Off label use [Unknown]
  - Abdominal distension [Not Recovered/Not Resolved]
  - Product use issue [Unknown]
  - Abdominal pain lower [Not Recovered/Not Resolved]
  - Drug ineffective for unapproved indication [Not Recovered/Not Resolved]
